FAERS Safety Report 17841054 (Version 4)
Quarter: 2022Q4

REPORT INFORMATION
  Report Type: Spontaneous
  Country: US (occurrence: US)
  Receive Date: 20200529
  Receipt Date: 20221017
  Transmission Date: 20230112
  Serious: No
  Sender: FDA-Public Use
  Company Number: US-PFIZER INC-2020210374

PATIENT
  Age: 85 Year
  Sex: Male

DRUGS (1)
  1. EUCRISA [Suspect]
     Active Substance: CRISABOROLE
     Indication: Dermatitis
     Dosage: UNK (APPLY ONCE TOPICALLY 2 TIMES DAILY)
     Route: 061

REACTIONS (1)
  - Therapeutic product effect decreased [Unknown]
